FAERS Safety Report 18559072 (Version 1)
Quarter: 2020Q4

REPORT INFORMATION
  Report Type: Spontaneous
  Country: FR (occurrence: FR)
  Receive Date: 20201130
  Receipt Date: 20201130
  Transmission Date: 20210114
  Serious: Yes (Disabling)
  Sender: FDA-Public Use
  Company Number: FR-JNJFOC-20201143603

PATIENT
  Age: 60 Year
  Sex: Female

DRUGS (1)
  1. RIVAROXABAN [Suspect]
     Active Substance: RIVAROXABAN
     Indication: THROMBOSIS PROPHYLAXIS
     Dosage: 10 MG, QD
     Route: 048
     Dates: start: 202001, end: 202010

REACTIONS (8)
  - Pain [Unknown]
  - Tendon pain [Recovered/Resolved]
  - Fatigue [Unknown]
  - Myalgia [Recovered/Resolved]
  - Musculoskeletal disorder [Unknown]
  - Asthenia [Unknown]
  - Product prescribing issue [Unknown]
  - Gait inability [Unknown]

NARRATIVE: CASE EVENT DATE: 2020
